FAERS Safety Report 8021962-X (Version None)
Quarter: 2012Q1

REPORT INFORMATION
  Report Type: 
  Country: None (occurrence: None)
  Receive Date: 20120104
  Receipt Date: 20111229
  Transmission Date: 20120608
  Serious: Yes (Other)
  Sender: FDA-Public Use
  Company Number: PHHY2011GB113336

PATIENT
  Age: 69 Year
  Sex: Female

DRUGS (4)
  1. AZITHROMYCIN [Suspect]
     Indication: RESPIRATORY TRACT INFECTION
     Dosage: 500 MG, QD
  2. PREDNISOLONE [Suspect]
     Dosage: 30 MG, QD
  3. FLUTICASONE PROPIONATE/SALMETEROL [Suspect]
     Indication: ASTHMA
     Dosage: 125 DF, UNK
     Dates: start: 20110908
  4. CLARITHROMYCIN [Suspect]
     Indication: RESPIRATORY TRACT INFECTION
     Dosage: 500 MG, BID
     Dates: start: 20111018

REACTIONS (4)
  - CHEST DISCOMFORT [None]
  - ORAL CANDIDIASIS [None]
  - CIRCULATORY COLLAPSE [None]
  - DRUG INEFFECTIVE [None]
